FAERS Safety Report 10327951 (Version 5)
Quarter: 2015Q1

REPORT INFORMATION
  Report Type: Spontaneous
  Country: US (occurrence: US)
  Receive Date: 20140721
  Receipt Date: 20150319
  Transmission Date: 20150720
  Serious: No
  Sender: FDA-Public Use
  Company Number: US-PFIZER INC-2014202490

PATIENT
  Age: 38 Year
  Sex: Female

DRUGS (30)
  1. LYRICA [Suspect]
     Active Substance: PREGABALIN
     Dosage: 200 MG (1 CAPSULE), 2X/DAY
  2. CPAP [Concomitant]
     Active Substance: DEVICE
     Dosage: UNK (C-FLEX 3 W/HEATED HUMIDITY, CLEAR BLUE NASAL MASK)
     Dates: start: 20130318
  3. ESTROPIPATE. [Concomitant]
     Active Substance: ESTROPIPATE
     Dosage: 1.5 MG, 1X/DAY
     Route: 048
     Dates: start: 20120907
  4. NYSTATIN. [Concomitant]
     Active Substance: NYSTATIN
     Dosage: UNK (100000 UNIT/GM EXTERNAL POWDER APPLY TWO (2) TO THREE DAILY TO AFFECTED AREA(S))
     Dates: start: 20130828
  5. PREMARIN [Concomitant]
     Active Substance: ESTROGENS, CONJUGATED
     Dosage: 0.625 MG/G, UNK (INSERT 1 APPLICATOR DAILY FOR TWO WEEKS THEN TWICE WEEKLY)
     Route: 067
     Dates: start: 20130703
  6. ZYRTEC-D [Concomitant]
     Active Substance: CETIRIZINE HYDROCHLORIDE\PSEUDOEPHEDRINE HYDROCHLORIDE
     Dosage: 1 DF, 2X/DAY (CETIRIZINE 5MG, PSEUDOEPHEDRINE 120MG)
     Route: 048
     Dates: start: 20140501
  7. BUMETANIDE. [Concomitant]
     Active Substance: BUMETANIDE
     Dosage: 2 MG, 2X/DAY
     Route: 048
     Dates: start: 20130917
  8. OXYCODONE/PARACETAMOL [Concomitant]
     Indication: PAIN
     Dosage: 2 DF, 4X/DAY (OXYCODONE 5MG ACETAMINOPHEN 325 MG; PRN)
     Dates: start: 20130827
  9. TEMAZEPAM. [Concomitant]
     Active Substance: TEMAZEPAM
     Dosage: 30 MG, AS NEEDED (TAKE 1 CAPSULE AT BEDTIME)
     Route: 048
     Dates: start: 20131010
  10. VITAMIN D [Concomitant]
     Active Substance: CHOLECALCIFEROL
     Dosage: 1000 IU, DAILY
     Route: 048
     Dates: start: 20131010
  11. ADVAIR DISKUS [Concomitant]
     Active Substance: FLUTICASONE PROPIONATE\SALMETEROL XINAFOATE
     Dosage: UNK (FLUTICASONE PROPIONATE 500- SALMETEROL XINAFOATE 50MCG/DOSE) (INHALATION AEROSOL POWDER BREATH)
     Dates: start: 20120820
  12. HYDROCORTISONE. [Concomitant]
     Active Substance: HYDROCORTISONE
     Dosage: UNK (5 MG ORAL TABLET)
     Route: 048
     Dates: start: 20131028
  13. LEVOTHYROXINE SODIUM. [Concomitant]
     Active Substance: LEVOTHYROXINE SODIUM
     Dosage: 75 ?G, 1X/DAY
     Route: 048
  14. LISINOPRIL. [Concomitant]
     Active Substance: LISINOPRIL
     Dosage: 20 MG, 1X/DAY
     Route: 048
     Dates: start: 20120820
  15. LORATADINE. [Concomitant]
     Active Substance: LORATADINE
     Dosage: 10 MG, 1X/DAY
     Route: 048
     Dates: start: 20130409
  16. METOLAZONE. [Concomitant]
     Active Substance: METOLAZONE
     Dosage: 5 MG, UNK (TAKE TWO TABLETS BY MOUTH ON MON, WED, FRI AND SAT)
     Route: 048
     Dates: start: 20131119
  17. PROVENTIL HFA [Concomitant]
     Active Substance: ALBUTEROL SULFATE
     Indication: ASTHMA
     Dosage: UNK UNK, AS NEEDED (08 (90 BASE) MCG/ACT INHALATION AEROSOL SOLUTION INHALE 2 PUFFS EVERY HOURS)
     Route: 045
     Dates: start: 20130129
  18. PROVENTIL HFA [Concomitant]
     Active Substance: ALBUTEROL SULFATE
     Dosage: UNK UNK, AS NEEDED (08 (90 BASE) MCG/ACT INHALATION AEROSOL SOLUTION INHALE TWO PUFFS EVERY HOURS)
     Route: 045
     Dates: start: 20131008
  19. LYRICA [Suspect]
     Active Substance: PREGABALIN
     Indication: FIBROMYALGIA
     Dosage: 200 MG (1 CAPSULE), 2X/DAY
     Route: 048
     Dates: start: 20130827, end: 201407
  20. FIORICET [Concomitant]
     Active Substance: ACETAMINOPHEN\BUTALBITAL\CAFFEINE
     Dosage: 1 DF, 1X/DAY (BUTALBITAL 50 MG, CAFFEINE 325 MG, PARACETAMOL 40MG)
     Dates: start: 20120829
  21. NASONEX [Concomitant]
     Active Substance: MOMETASONE FUROATE
     Dosage: UNK, 1X/DAY (50 MCG/ACT NASAL SUSPENSION USE 2 SPRAYS IN EACH NOSTRIL)
     Dates: start: 20120820
  22. SPIRONOLACTONE. [Concomitant]
     Active Substance: SPIRONOLACTONE
     Dosage: 50 MG, DAILY
     Route: 048
     Dates: start: 20120820
  23. NOVOLOG [Concomitant]
     Active Substance: INSULIN ASPART
     Dosage: 100 IU/ML, 3X/DAY (INJECT 8 UNIT 3 TIMES DAILY WITH MEALS)
     Route: 058
     Dates: start: 20141212
  24. TIZANIDINE HYDROCHLORIDE. [Concomitant]
     Active Substance: TIZANIDINE HYDROCHLORIDE
     Dosage: 4 MG, AS NEEDED (TAKE ONE + ONE-HALF TABLETS BY MOUTH THREE TIMES DAILY)
     Route: 048
     Dates: start: 20140221
  25. LEVEMIR [Concomitant]
     Active Substance: INSULIN DETEMIR
     Dosage: 100 IU/ML, UNK (INJECT 15 U Q AM + 10 U QHS)
     Route: 058
     Dates: start: 20141212
  26. POTASSIUM CHLORIDE. [Concomitant]
     Active Substance: POTASSIUM CHLORIDE
     Dosage: 20 MEQ, UNK (TAKE ONE TABLET DAILY FOR 14 DAYS, THEN ONE TABLET DAILY TWICE A WEEK)
     Route: 048
     Dates: start: 20140416
  27. ALBUTEROL SULFATE. [Concomitant]
     Active Substance: ALBUTEROL SULFATE
     Dosage: UNK (2.5MG/3ML) (0.083%; 1 UNIT PER DOSE PER NEBULIZER EVERY 2-4 HOURS)
     Route: 045
     Dates: start: 20130808
  28. BUTRANS [Concomitant]
     Active Substance: BUPRENORPHINE
     Dosage: UNK UNK, WEEKLY
     Route: 062
  29. DICYCLOMINE HCL [Concomitant]
     Active Substance: DICYCLOMINE HYDROCHLORIDE
     Indication: MUSCLE SPASMS
     Dosage: 1 DF, AS NEEDED (BEFORE MEALS AND/OR BEDTIME AS NEEDED)
     Route: 048
     Dates: start: 20140422
  30. OMEPRAZOLE. [Concomitant]
     Active Substance: OMEPRAZOLE
     Dosage: 20 MG, 1X/DAY
     Route: 048
     Dates: start: 20140110

REACTIONS (2)
  - Asthma [Unknown]
  - Headache [Unknown]
